FAERS Safety Report 5116904-0 (Version None)
Quarter: 2006Q3

REPORT INFORMATION
  Report Type: 
  Country: None (occurrence: None)
  Receive Date: 20060927
  Receipt Date: 20060927
  Transmission Date: 20061208
  Serious: Yes (Hospitalization)
  Sender: FDA-Public Use
  Company Number: None

PATIENT
  Sex: Female
  Weight: 22 kg

DRUGS (4)
  1. PEG-L-ASPARAGINASE (K-H) [Suspect]
     Dosage: 2150 MG
  2. VINCRISTINE SULFATE [Suspect]
     Dosage: 5.2 MG
  3. CYTARABINE [Suspect]
     Dosage: 70 MG
  4. DEXAMETHASONE TAB [Suspect]
     Dosage: 125 MG

REACTIONS (9)
  - CONSTIPATION [None]
  - HAEMORRHOIDS [None]
  - IMMUNOSUPPRESSION [None]
  - MUSCLE HAEMORRHAGE [None]
  - MUSCLE INJURY [None]
  - NECROSIS [None]
  - NEUTROPENIA [None]
  - RECTAL FISSURE [None]
  - RECTAL ULCER [None]
